FAERS Safety Report 13526859 (Version 3)
Quarter: 2017Q3

REPORT INFORMATION
  Report Type: Spontaneous
  Country: US (occurrence: US)
  Receive Date: 20170509
  Receipt Date: 20170707
  Transmission Date: 20171127
  Serious: Yes (Death, Hospitalization)
  Sender: FDA-Public Use
  Company Number: US-TAIHO ONCOLOGY INC-EU-2017-00728

PATIENT
  Age: 75 Year
  Sex: Female

DRUGS (17)
  1. TOVIAZ [Concomitant]
     Active Substance: FESOTERODINE FUMARATE
     Dosage: NI
  2. LANTUS [Concomitant]
     Active Substance: INSULIN GLARGINE
     Dosage: NI
  3. NOVOLOG [Concomitant]
     Active Substance: INSULIN ASPART
     Dosage: NI
  4. LONSURF [Suspect]
     Active Substance: TIPIRACIL HYDROCHLORIDE\TRIFLURIDINE
     Indication: RECTOSIGMOID CANCER
     Route: 048
     Dates: start: 20170405
  5. SYNTHROID [Concomitant]
     Active Substance: LEVOTHYROXINE SODIUM
     Dosage: NI
  6. ZETIA [Concomitant]
     Active Substance: EZETIMIBE
     Dosage: NI
  7. ACETYLSALICYLIC ACID [Concomitant]
     Active Substance: ASPIRIN
     Dosage: NI
  8. MEGACE [Concomitant]
     Active Substance: MEGESTROL ACETATE
     Dosage: NI
  9. ZOFRAN [Concomitant]
     Active Substance: ONDANSETRON HYDROCHLORIDE
     Dosage: NI
  10. ATORVASTATIN [Concomitant]
     Active Substance: ATORVASTATIN
     Dosage: NI
  11. LYRICA [Concomitant]
     Active Substance: PREGABALIN
     Dosage: NI
  12. LASIX [Concomitant]
     Active Substance: FUROSEMIDE
     Dosage: NI
  13. AMIODARONE [Concomitant]
     Active Substance: AMIODARONE
     Dosage: NI
  14. OXYBUTYNIN [Concomitant]
     Active Substance: OXYBUTYNIN
     Dosage: NI
  15. IRON [Concomitant]
     Active Substance: IRON
     Dosage: NI
  16. PRILOSEC [Concomitant]
     Active Substance: OMEPRAZOLE MAGNESIUM
     Dosage: NI
  17. TRICOR [Concomitant]
     Active Substance: FENOFIBRATE
     Dosage: NI

REACTIONS (4)
  - Urinary tract infection [Recovering/Resolving]
  - Disease progression [Fatal]
  - Mental status changes [Recovered/Resolved]
  - Hypophagia [Not Recovered/Not Resolved]

NARRATIVE: CASE EVENT DATE: 20170426
